FAERS Safety Report 17621573 (Version 1)
Quarter: 2020Q2

REPORT INFORMATION
  Report Type: Spontaneous
  Country: NL (occurrence: NL)
  Receive Date: 20200403
  Receipt Date: 20200403
  Transmission Date: 20200713
  Serious: Yes (Other)
  Sender: FDA-Public Use
  Company Number: NL-TEVA-2020-NL-1217582

PATIENT
  Sex: Female

DRUGS (3)
  1. DIAZEPAM. [Concomitant]
     Active Substance: DIAZEPAM
     Dosage: IF NECESSARY (OCCASIONALLY); 1 DOSAGE FORM
  2. NEBIVOLOL. [Suspect]
     Active Substance: NEBIVOLOL
     Indication: PRODUCT USED FOR UNKNOWN INDICATION
     Dosage: 2.5 MG, 1 X A DAY 1 PIECE; 2MG
     Dates: start: 20191122, end: 20191122
  3. FLECAINIDE [Concomitant]
     Active Substance: FLECAINIDE
     Dosage: IF NECESSARY IN CASE OF COMPLAINTS 50 MG (OCCASIONAL)

REACTIONS (5)
  - Hypoaesthesia [Recovered/Resolved]
  - Fall [Recovered/Resolved]
  - Urinary incontinence [Recovered/Resolved]
  - Muscular weakness [Recovered/Resolved]
  - Hallucination [Recovered/Resolved]
